FAERS Safety Report 6920083-4 (Version None)
Quarter: 2010Q3

REPORT INFORMATION
  Report Type: 
  Country: None (occurrence: None)
  Receive Date: 20100811
  Receipt Date: 20100729
  Transmission Date: 20110219
  Serious: Yes (Hospitalization, Other)
  Sender: FDA-Public Use
  Company Number: US-ELI_LILLY_AND_COMPANY-US201004001083

PATIENT
  Sex: Female

DRUGS (16)
  1. FORTEO [Suspect]
     Indication: OSTEOPOROSIS
     Dosage: 20 UG, DAILY (1/D)
     Dates: start: 20100217, end: 20100218
  2. FORTEO [Suspect]
     Dosage: 20 UG, DAILY (1/D)
     Dates: start: 20100312
  3. FORTEO [Suspect]
     Dosage: 20 UG, DAILY (1/D)
  4. NORVASC [Concomitant]
  5. LIPITOR [Concomitant]
  6. ZOLOFT [Concomitant]
  7. PRILOSEC [Concomitant]
  8. POTASSIUM CHLORIDE [Concomitant]
  9. VITAMIN D [Concomitant]
  10. CITRACAL [Concomitant]
  11. CENTRUM [Concomitant]
  12. FISH OIL [Concomitant]
  13. OXYCONTIN [Concomitant]
  14. OMEPRAZOLE [Concomitant]
  15. CALCIUM [Concomitant]
  16. VITAMIN TAB [Concomitant]

REACTIONS (14)
  - ARTHRITIS [None]
  - BACK PAIN [None]
  - DRUG DOSE OMISSION [None]
  - DYSPHAGIA [None]
  - FALL [None]
  - GASTROINTESTINAL DISORDER [None]
  - HEADACHE [None]
  - HIATUS HERNIA [None]
  - HIP FRACTURE [None]
  - LUMBAR VERTEBRAL FRACTURE [None]
  - OESOPHAGEAL DISORDER [None]
  - PAIN IN EXTREMITY [None]
  - PELVIC FRACTURE [None]
  - WEIGHT DECREASED [None]
